FAERS Safety Report 18379810 (Version 1)
Quarter: 2020Q4

REPORT INFORMATION
  Report Type: Spontaneous
  Country: GB (occurrence: GB)
  Receive Date: 20201014
  Receipt Date: 20201014
  Transmission Date: 20210114
  Serious: Yes (Death, Life-Threatening, Other)
  Sender: FDA-Public Use
  Company Number: GB-CPL-001964

PATIENT
  Age: 32 Year
  Sex: Female
  Weight: 89.6 kg

DRUGS (2)
  1. MIRTAZAPINE. [Interacting]
     Active Substance: MIRTAZAPINE
     Indication: DEPRESSION
     Route: 048
     Dates: start: 20200415
  2. VENLAFAXINE/VENLAFAXINE HYDROCHLORIDE [Suspect]
     Active Substance: VENLAFAXINE HYDROCHLORIDE
     Indication: DEPRESSION
     Route: 048
     Dates: start: 20200611

REACTIONS (3)
  - Drug interaction [Unknown]
  - Completed suicide [Fatal]
  - Overdose [Unknown]

NARRATIVE: CASE EVENT DATE: 202005
